FAERS Safety Report 22888009 (Version 3)
Quarter: 2023Q4

REPORT INFORMATION
  Report Type: Report from Study
  Country: CA (occurrence: None)
  Receive Date: 20230831
  Receipt Date: 20231003
  Transmission Date: 20240109
  Serious: Yes (Other)
  Sender: FDA-Public Use
  Company Number: 2023A195065

PATIENT
  Sex: Female

DRUGS (3)
  1. TEZSPIRE [Suspect]
     Active Substance: TEZEPELUMAB-EKKO
     Indication: Asthma
     Dosage: 2.5 MCG 2INH OD
     Route: 058
     Dates: start: 20230823
  2. ALVESCO [Concomitant]
     Active Substance: CICLESONIDE
     Dosage: 200MCG 3INH BID
     Dates: start: 2017
  3. SPIRIVA RESPIMAT [Concomitant]
     Active Substance: TIOTROPIUM BROMIDE
     Dosage: 2.5MCG 2INH OD
     Dates: start: 2017

REACTIONS (5)
  - Tonsillar hypertrophy [Recovering/Resolving]
  - Swollen tongue [Recovering/Resolving]
  - Dizziness [Recovering/Resolving]
  - Pharyngeal swelling [Recovering/Resolving]
  - Product dose omission issue [Unknown]
